FAERS Safety Report 9258436 (Version 1)
Quarter: 2013Q2

REPORT INFORMATION
  Report Type: Spontaneous
  Country: UA (occurrence: UA)
  Receive Date: 20130426
  Receipt Date: 20130426
  Transmission Date: 20140414
  Serious: Yes (Life-Threatening, Hospitalization)
  Sender: FDA-Public Use
  Company Number: PHHY2013UA040694

PATIENT
  Sex: Female

DRUGS (1)
  1. DOCETAXEL SANDOZ [Suspect]
     Indication: BREAST CANCER FEMALE
     Dosage: 120 MG ONCE IN 21 DAY
     Route: 042

REACTIONS (4)
  - Dermatitis bullous [Recovered/Resolved]
  - Toxicity to various agents [Recovered/Resolved]
  - Skin necrosis [Recovered/Resolved]
  - Rash generalised [Recovered/Resolved]
